FAERS Safety Report 25362862 (Version 1)
Quarter: 2025Q2

REPORT INFORMATION
  Report Type: Spontaneous
  Country: US (occurrence: None)
  Receive Date: 20250523
  Receipt Date: 20250523
  Transmission Date: 20250717
  Serious: Yes (Other)
  Sender: FDA-CTU
  Company Number: None

PATIENT
  Age: 40 Year
  Sex: Male
  Weight: 112.5 kg

DRUGS (1)
  1. ZYRTEC [Suspect]
     Active Substance: CETIRIZINE HYDROCHLORIDE
     Indication: Seasonal allergy
     Route: 048

REACTIONS (10)
  - Eczema [None]
  - Withdrawal syndrome [None]
  - Pruritus [None]
  - Eyelids pruritus [None]
  - Pruritus [None]
  - Urticaria [None]
  - Skin erosion [None]
  - Skin haemorrhage [None]
  - Anxiety [None]
  - Pain [None]

NARRATIVE: CASE EVENT DATE: 20250515
